FAERS Safety Report 8855874 (Version 1)
Quarter: 2012Q4

REPORT INFORMATION
  Report Type: Spontaneous
  Country: US (occurrence: None)
  Receive Date: 20121022
  Receipt Date: 20121022
  Transmission Date: 20130627
  Serious: No
  Sender: FDA-Public Use
  Company Number: None

PATIENT
  Age: 42 Year
  Sex: Male
  Weight: 87.54 kg

DRUGS (2)
  1. OLANZAPINE [Suspect]
  2. SEROQUEL [Suspect]

REACTIONS (6)
  - Blood glucose increased [None]
  - Sexual dysfunction [None]
  - Neoplasm malignant [None]
  - Job dissatisfaction [None]
  - Diabetes mellitus [None]
  - Pancreatic disorder [None]
